FAERS Safety Report 19724331 (Version 1)
Quarter: 2021Q3

REPORT INFORMATION
  Report Type: Spontaneous
  Country: JP (occurrence: JP)
  Receive Date: 20210819
  Receipt Date: 20210819
  Transmission Date: 20211014
  Serious: Yes (Other)
  Sender: FDA-Public Use
  Company Number: JP-ASTRAZENECA-2021A680888

PATIENT
  Age: 60 Year
  Sex: Female

DRUGS (8)
  1. PRIMPERAN [Concomitant]
     Active Substance: METOCLOPRAMIDE HYDROCHLORIDE
     Dosage: DOSE UNKNOWN
     Route: 065
  2. CALONAL [Concomitant]
     Active Substance: ACETAMINOPHEN
     Dosage: DOSE UNKNOWN
     Route: 065
  3. MUCOSTA [Concomitant]
     Active Substance: REBAMIPIDE
     Dosage: DOSE UNKNOWN
     Route: 065
  4. ACELIO [Concomitant]
     Active Substance: ACETAMINOPHEN
     Dosage: DOSE UNKNOWN
     Route: 065
  5. NEOPHAGEN [Concomitant]
     Active Substance: GLYCYRRHIZIN
     Dosage: DOSE UNKNOWN
     Route: 065
  6. OMEPRAL [Suspect]
     Active Substance: OMEPRAZOLE
     Dosage: DOSE UNKNOWN
     Route: 048
  7. AGENTS FOR PEPTIC ULCER [Concomitant]
     Active Substance: UNSPECIFIED INGREDIENT
     Dosage: DOSE UNKNOWN
     Route: 065
  8. OTHER AGENTS AFFECTING DIGESTIVE ORGANS [Concomitant]
     Dosage: DOSE UNKNOWN
     Route: 065

REACTIONS (19)
  - Chills [Not Recovered/Not Resolved]
  - Dysbiosis [Not Recovered/Not Resolved]
  - Food allergy [Not Recovered/Not Resolved]
  - Dizziness [Not Recovered/Not Resolved]
  - Flank pain [Not Recovered/Not Resolved]
  - Menstruation irregular [Not Recovered/Not Resolved]
  - Female sex hormone level abnormal [Not Recovered/Not Resolved]
  - Intermenstrual bleeding [Not Recovered/Not Resolved]
  - Musculoskeletal stiffness [Not Recovered/Not Resolved]
  - Feeling cold [Not Recovered/Not Resolved]
  - Thirst [Not Recovered/Not Resolved]
  - Cystitis [Not Recovered/Not Resolved]
  - Dehydration [Not Recovered/Not Resolved]
  - Pyrexia [Not Recovered/Not Resolved]
  - Blood pressure decreased [Not Recovered/Not Resolved]
  - Headache [Not Recovered/Not Resolved]
  - Breast cancer [Not Recovered/Not Resolved]
  - Vomiting [Not Recovered/Not Resolved]
  - Nausea [Not Recovered/Not Resolved]
